FAERS Safety Report 13251509 (Version 3)
Quarter: 2017Q2

REPORT INFORMATION
  Report Type: Spontaneous
  Country: US (occurrence: US)
  Receive Date: 20170220
  Receipt Date: 20170428
  Transmission Date: 20170830
  Serious: Yes (Hospitalization)
  Sender: FDA-Public Use
  Company Number: US-AUROBINDO-AUR-APL-2017-29748

PATIENT
  Age: 9 Month

DRUGS (2)
  1. CHLOROPROCAINE [Suspect]
     Active Substance: CHLOROPROCAINE
     Indication: CATHETER PLACEMENT
     Dosage: 1 ML/KG
     Route: 065
  2. ROPIVACAINE HYDROCHLORIDE. [Suspect]
     Active Substance: ROPIVACAINE HYDROCHLORIDE
     Indication: CATHETER PLACEMENT
     Dosage: 0.2 ML/KG/HOURS
     Route: 065

REACTIONS (2)
  - Oxygen saturation decreased [Recovered/Resolved]
  - Generalised tonic-clonic seizure [Recovered/Resolved]
